FAERS Safety Report 4576116-6 (Version None)
Quarter: 2005Q1

REPORT INFORMATION
  Report Type: 
  Country: None (occurrence: None)
  Receive Date: 20050204
  Receipt Date: 20050126
  Transmission Date: 20050727
  Serious: Yes (Hospitalization)
  Sender: FDA-Public Use
  Company Number: GXKR2005IT00506

PATIENT
  Age: 56 Year
  Sex: Male

DRUGS (1)
  1. OMEPRAZOLE [Suspect]
     Indication: GASTRIC ULCER HAEMORRHAGE
     Dosage: ORAL
     Route: 048

REACTIONS (6)
  - MACULAR OEDEMA [None]
  - OCULAR VASCULAR DISORDER [None]
  - RETINAL ARTERY OCCLUSION [None]
  - RETINAL ARTERY STENOSIS [None]
  - RETINAL PALLOR [None]
  - VISUAL FIELD DEFECT [None]
